FAERS Safety Report 4631407-5 (Version None)
Quarter: 2005Q2

REPORT INFORMATION
  Report Type: 
  Country: None (occurrence: None)
  Receive Date: 20050407
  Receipt Date: 20050325
  Transmission Date: 20051028
  Serious: Yes (Hospitalization, Other)
  Sender: FDA-Public Use
  Company Number: 2005049308

PATIENT
  Age: 22 Year
  Sex: Male
  Weight: 89.8122 kg

DRUGS (8)
  1. ZOLOFT [Suspect]
     Indication: DEPRESSION
     Dosage: 50 MG (50 MG, 1 IN 1 D), ORAL
     Route: 048
     Dates: start: 19890101
  2. VENLAFAXINE HCL [Suspect]
     Indication: DEPRESSION
     Dosage: ORAL
     Route: 048
     Dates: start: 19950101
  3. OMEPRAZOLE [Suspect]
     Indication: GASTRIC DISORDER
     Dosage: 20 MG (20 MG, 1 IN 1 D), ORAL
     Route: 048
     Dates: end: 20050101
  4. HYDROCHLOROTHIAZIDE [Concomitant]
  5. AMLODIPINE [Concomitant]
  6. FOSINOPRIL SODIUM [Concomitant]
  7. ASPIRIN [Concomitant]
  8. SILDENAFIL CITRATE (SILDENAFIL CITRATE) [Concomitant]

REACTIONS (13)
  - ABDOMINAL PAIN UPPER [None]
  - ACCIDENT AT WORK [None]
  - BACK PAIN [None]
  - ERECTILE DYSFUNCTION [None]
  - FOREIGN BODY TRAUMA [None]
  - GASTRIC DISORDER [None]
  - HEAD INJURY [None]
  - NECK PAIN [None]
  - PHARMACEUTICAL PRODUCT COMPLAINT [None]
  - ROAD TRAFFIC ACCIDENT [None]
  - SELF-MEDICATION [None]
  - SEXUAL DYSFUNCTION [None]
  - UPPER LIMB FRACTURE [None]
